FAERS Safety Report 13135071 (Version 1)
Quarter: 2017Q1

REPORT INFORMATION
  Report Type: Report from Study
  Country: US (occurrence: US)
  Receive Date: 20170120
  Receipt Date: 20170120
  Transmission Date: 20170428
  Serious: Yes (Other)
  Sender: FDA-Public Use
  Company Number: US-SA-2017SA005777

PATIENT
  Age: 38 Year
  Sex: Female

DRUGS (1)
  1. LEMTRADA [Suspect]
     Active Substance: ALEMTUZUMAB
     Indication: MULTIPLE SCLEROSIS
     Route: 041
     Dates: start: 20161220, end: 20161222

REACTIONS (6)
  - Dyspnoea [Unknown]
  - Chest pain [Unknown]
  - Fatigue [Not Recovered/Not Resolved]
  - Incoherent [Not Recovered/Not Resolved]
  - Respiratory disorder [Unknown]
  - Tremor [Not Recovered/Not Resolved]
